FAERS Safety Report 10152353 (Version 2)
Quarter: 2014Q2

REPORT INFORMATION
  Report Type: Spontaneous
  Country: CA (occurrence: CA)
  Receive Date: 20140505
  Receipt Date: 20140505
  Transmission Date: 20141212
  Serious: Yes (Other)
  Sender: FDA-Public Use
  Company Number: CA-SANOFI-AVENTIS-2013SA091487

PATIENT
  Age: 52 Year
  Sex: Female
  Weight: 78 kg

DRUGS (9)
  1. TAXOTERE [Suspect]
     Indication: BREAST CANCER METASTATIC
     Dosage: FORM: SOLUTION INTRAVENOUS
     Route: 065
     Dates: start: 20130904, end: 201401
  2. HERCEPTIN [Suspect]
     Indication: BREAST CANCER METASTATIC
     Route: 042
     Dates: end: 201401
  3. PERJETA [Suspect]
     Indication: METASTATIC NEOPLASM
     Route: 042
     Dates: end: 20140108
  4. PERJETA [Suspect]
     Indication: METASTATIC NEOPLASM
     Route: 042
     Dates: start: 20130904
  5. LOSEC [Concomitant]
     Dates: start: 2007
  6. OXYCODONE [Concomitant]
  7. TYLENOL [Concomitant]
  8. COVERSYL [Concomitant]
     Dates: start: 2011
  9. PAMIDRONATE DISODIUM [Concomitant]
     Route: 042
     Dates: start: 2006

REACTIONS (5)
  - Hip fracture [Unknown]
  - Fall [Unknown]
  - Rash macular [Unknown]
  - Pruritus [Unknown]
  - Burning sensation [Unknown]
